FAERS Safety Report 4316399-0 (Version None)
Quarter: 2004Q1

REPORT INFORMATION
  Report Type: 
  Country: None (occurrence: None)
  Receive Date: 20040312
  Receipt Date: 20040304
  Transmission Date: 20041129
  Serious: Yes (Hospitalization, Disabling)
  Sender: FDA-Public Use
  Company Number: PHRM2004FR01095

PATIENT
  Age: 47 Year
  Sex: Female
  Weight: 51 kg

DRUGS (2)
  1. ESTRADERM [Suspect]
     Dosage: 4 DF/MONTH
     Route: 062
  2. ANDROCUR [Suspect]
     Indication: HIRSUTISM
     Dosage: 25 MG/DAY EVERY 3 WEEKS OVER 4
     Route: 048

REACTIONS (5)
  - BLINDNESS [None]
  - BLINDNESS UNILATERAL [None]
  - MENINGEOMAS SURGERY [None]
  - MENINGIOMA [None]
  - TUMOUR EMBOLISM [None]
